FAERS Safety Report 9357011 (Version 2)
Quarter: 2014Q3

REPORT INFORMATION
  Report Type: Spontaneous
  Country: DE (occurrence: DE)
  Receive Date: 20130620
  Receipt Date: 20140922
  Transmission Date: 20150326
  Serious: Yes (Hospitalization, Other)
  Sender: FDA-Public Use
  Company Number: DE-RANBAXY-2013RR-70404

PATIENT
  Age: 56 Year
  Sex: Male
  Weight: 75 kg

DRUGS (4)
  1. SIMVASTATIN. [Suspect]
     Active Substance: SIMVASTATIN
     Indication: HYPERLIPIDAEMIA
     Dosage: 40 MG, QD
     Route: 048
     Dates: start: 2007, end: 201101
  2. LOCOL 40 [Suspect]
     Active Substance: FLUVASTATIN SODIUM
     Indication: HYPERLIPIDAEMIA
     Dosage: UNK
     Route: 048
     Dates: start: 2000, end: 2007
  3. SORTIS [Suspect]
     Active Substance: ATORVASTATIN
     Indication: HYPERLIPIDAEMIA
     Dosage: UNK
     Route: 048
     Dates: start: 2000, end: 2007
  4. VERAPAMIL [Concomitant]
     Active Substance: VERAPAMIL HYDROCHLORIDE
     Indication: HYPERTENSION
     Dosage: 120 MG, UNK
     Route: 048
     Dates: start: 1999, end: 201101

REACTIONS (2)
  - Muscular weakness [Not Recovered/Not Resolved]
  - Muscle atrophy [Not Recovered/Not Resolved]

NARRATIVE: CASE EVENT DATE: 201101
